FAERS Safety Report 8017675-0 (Version None)
Quarter: 2012Q1

REPORT INFORMATION
  Report Type: 
  Country: None (occurrence: None)
  Receive Date: 20120103
  Receipt Date: 20110610
  Transmission Date: 20120608
  Serious: Yes (Hospitalization, Other)
  Sender: FDA-Public Use
  Company Number: US-BAYER-2011-109429

PATIENT
  Age: 48 Year
  Sex: Female

DRUGS (1)
  1. INTERFERON BETA-1B [Suspect]
     Indication: MULTIPLE SCLEROSIS
     Dosage: 8 MIU WITH BETAJECT
     Route: 058
     Dates: start: 20110503, end: 20111028

REACTIONS (8)
  - MULTIPLE SCLEROSIS RELAPSE [None]
  - OEDEMA PERIPHERAL [None]
  - JOINT SWELLING [None]
  - MICTURITION URGENCY [None]
  - BALANCE DISORDER [None]
  - GAIT DISTURBANCE [None]
  - VAGINAL HAEMORRHAGE [None]
  - HYPOAESTHESIA [None]
